FAERS Safety Report 4561213-1 (Version None)
Quarter: 2005Q1

REPORT INFORMATION
  Report Type: 
  Country: None (occurrence: None)
  Receive Date: 20050121
  Receipt Date: 20050112
  Transmission Date: 20050727
  Serious: Yes (Other)
  Sender: FDA-Public Use
  Company Number: S04-USA-07366-01

PATIENT
  Age: 32 Year
  Sex: Male

DRUGS (2)
  1. LEXAPRO [Suspect]
     Indication: DEPRESSION
     Dates: start: 20040101
  2. ALCOHOL [Suspect]
     Dates: start: 20041031, end: 20041031

REACTIONS (3)
  - AGGRESSION [None]
  - ALCOHOL USE [None]
  - SPOUSAL ABUSE [None]
